FAERS Safety Report 10053985 (Version 3)
Quarter: 2014Q2

REPORT INFORMATION
  Report Type: Spontaneous
  Country: US (occurrence: US)
  Receive Date: 20140402
  Receipt Date: 20140501
  Transmission Date: 20141212
  Serious: Yes (Other)
  Sender: FDA-Public Use
  Company Number: CHPA2014US004684

PATIENT
  Age: 78 Year
  Sex: Female

DRUGS (1)
  1. GAS-X EXTSTR CHEWABLE TABS CHERRY CREME [Suspect]
     Dosage: UNK, BID
     Route: 048

REACTIONS (1)
  - Amnesia [Not Recovered/Not Resolved]
